FAERS Safety Report 26075163 (Version 1)
Quarter: 2025Q4

REPORT INFORMATION
  Report Type: Spontaneous
  Country: US (occurrence: US)
  Receive Date: 20251121
  Receipt Date: 20251121
  Transmission Date: 20260118
  Serious: No
  Sender: PFIZER
  Company Number: US-PFIZER INC-202300097292

PATIENT
  Sex: Female

DRUGS (1)
  1. FLUCONAZOLE [Suspect]
     Active Substance: FLUCONAZOLE
     Indication: Fungal infection
     Dosage: UNK

REACTIONS (3)
  - Drug ineffective [Unknown]
  - Fungal infection [Unknown]
  - Condition aggravated [Unknown]
